FAERS Safety Report 9905088 (Version 2)
Quarter: 2014Q1

REPORT INFORMATION
  Report Type: Spontaneous
  Country: US (occurrence: US)
  Receive Date: 20140218
  Receipt Date: 20140218
  Transmission Date: 20141002
  Serious: No
  Sender: FDA-Public Use
  Company Number: US-GILEAD-2012-0051090

PATIENT
  Sex: Male

DRUGS (4)
  1. LETAIRIS [Suspect]
     Indication: PULMONARY HYPERTENSION
     Dosage: 5 MG, UNK
     Route: 048
     Dates: start: 20111020, end: 20120228
  2. LETAIRIS [Suspect]
     Indication: PORTOPULMONARY HYPERTENSION
  3. LETAIRIS [Suspect]
     Indication: HYPOXIA
  4. LETAIRIS [Suspect]
     Indication: PULMONARY ARTERIAL PRESSURE INCREASED

REACTIONS (1)
  - Liver function test abnormal [Unknown]
